FAERS Safety Report 23898759 (Version 1)
Quarter: 2024Q2

REPORT INFORMATION
  Report Type: Report from Study
  Country: IT (occurrence: IT)
  Receive Date: 20240525
  Receipt Date: 20240525
  Transmission Date: 20240716
  Serious: Yes (Death)
  Sender: FDA-Public Use
  Company Number: IT-ABBVIE-5773990

PATIENT
  Age: 71 Year
  Sex: Male

DRUGS (2)
  1. CARBIDOPA\LEVODOPA [Suspect]
     Active Substance: CARBIDOPA\LEVODOPA
     Indication: Parkinson^s disease
     Dosage: DAILY DOSE: 1.048 MG; PUMP SETTING MD: 6,8ML+4ML CR: 2,6ML/H (16H) ED: 2ML
     Route: 050
     Dates: start: 20181113
  2. CARBIDOPA\LEVODOPA [Suspect]
     Active Substance: CARBIDOPA\LEVODOPA

REACTIONS (1)
  - General physical health deterioration [Fatal]
